FAERS Safety Report 7007866-X (Version None)
Quarter: 2010Q3

REPORT INFORMATION
  Report Type: 
  Country: None (occurrence: None)
  Receive Date: 20100922
  Receipt Date: 20100917
  Transmission Date: 20110219
  Serious: Yes (Other)
  Sender: FDA-Public Use
  Company Number: PE-ROCHE-728098

PATIENT
  Sex: Female
  Weight: 49.5 kg

DRUGS (1)
  1. ACTEMRA [Suspect]
     Indication: RHEUMATOID ARTHRITIS
     Dosage: FORM: INFUSION
     Route: 042
     Dates: start: 20100707

REACTIONS (3)
  - HEADACHE [None]
  - RASH [None]
  - TACHYCARDIA [None]
